FAERS Safety Report 10009944 (Version 1)
Quarter: 2014Q1

REPORT INFORMATION
  Report Type: Spontaneous
  Country: US (occurrence: US)
  Receive Date: 20140312
  Receipt Date: 20140312
  Transmission Date: 20141002
  Serious: No
  Sender: FDA-Public Use
  Company Number: US-INCYTE CORPORATION-2013IN000610

PATIENT
  Age: 74 Year
  Sex: Female

DRUGS (9)
  1. JAKAFI [Suspect]
     Indication: MYELODYSPLASTIC SYNDROME
     Dosage: 5 MG, BID
  2. MOTRIN [Concomitant]
  3. PROCRIT [Concomitant]
  4. FUROSEMIDE [Concomitant]
  5. LEVOTHYROXINE [Concomitant]
  6. COMPAZINE [Concomitant]
  7. METRONIDAZOLE [Concomitant]
  8. METOPROLOL [Concomitant]
  9. MULTIVITAMINS [Concomitant]

REACTIONS (1)
  - Arthralgia [Unknown]
